FAERS Safety Report 17193288 (Version 7)
Quarter: 2020Q1

REPORT INFORMATION
  Report Type: Report from Study
  Country: KR (occurrence: KR)
  Receive Date: 20191223
  Receipt Date: 20200115
  Transmission Date: 20200409
  Serious: Yes (Hospitalization)
  Sender: FDA-Public Use
  Company Number: KR-EISAI MEDICAL RESEARCH-EC-2019-065949

PATIENT
  Age: 49 Year
  Sex: Male
  Weight: 62.2 kg

DRUGS (9)
  1. CANDESARTAN CILEXETIL. [Concomitant]
     Active Substance: CANDESARTAN CILEXETIL
     Dates: start: 20131027, end: 20191120
  2. LACTULOSE. [Concomitant]
     Active Substance: LACTULOSE
     Dates: start: 20191106
  3. PEMBROLIZUMAB. [Suspect]
     Active Substance: PEMBROLIZUMAB
     Indication: GLIOBLASTOMA
     Route: 041
     Dates: start: 20191106, end: 20191106
  4. ULTRACET [Concomitant]
     Active Substance: ACETAMINOPHEN\TRAMADOL HYDROCHLORIDE
     Dates: start: 20191018, end: 20191126
  5. LENVATINIB [Suspect]
     Active Substance: LENVATINIB
     Dosage: STARTING DOSE 14MG, FLUCTUATED DOSES
     Route: 048
     Dates: start: 20191127
  6. PEMBROLIZUMAB. [Suspect]
     Active Substance: PEMBROLIZUMAB
     Route: 041
     Dates: start: 20191127
  7. SAVENE [Concomitant]
     Active Substance: DEXRAZOXANE
     Dates: start: 20131027, end: 20191120
  8. LENVATINIB [Suspect]
     Active Substance: LENVATINIB
     Indication: GLIOBLASTOMA
     Route: 048
     Dates: start: 20191106, end: 20191120
  9. MAGO [Concomitant]
     Dates: start: 20191030

REACTIONS (1)
  - Stomatitis [Recovered/Resolved]

NARRATIVE: CASE EVENT DATE: 20191117
